FAERS Safety Report 18209505 (Version 9)
Quarter: 2021Q1

REPORT INFORMATION
  Report Type: Report from Study
  Country: US (occurrence: US)
  Receive Date: 20200828
  Receipt Date: 20210311
  Transmission Date: 20210419
  Serious: Yes (Death, Life-Threatening, Hospitalization, Other)
  Sender: FDA-Public Use
  Company Number: US-GILEAD-2020-0489346

PATIENT
  Age: 76 Year
  Sex: Male
  Weight: 94.2 kg

DRUGS (62)
  1. TRAMADOL. [Concomitant]
     Active Substance: TRAMADOL
     Dosage: 50,MG,TWICE DAILY
     Route: 048
     Dates: start: 20200819, end: 20200819
  2. SODIUM CHLORIDE 0.9% [Concomitant]
     Active Substance: SODIUM CHLORIDE
     Dosage: 500,ML,AS NECESSARY
     Route: 041
     Dates: start: 20200713, end: 20200917
  3. MIDODRINE [Concomitant]
     Active Substance: MIDODRINE
     Dosage: 7.5,MG,THREE TIMES DAILY
     Route: 048
     Dates: start: 20200729, end: 20200823
  4. LORAZEPAM. [Concomitant]
     Active Substance: LORAZEPAM
     Dosage: 0.5 MG BID, NASAL ROUTE
     Dates: start: 20200830, end: 20200830
  5. AXICABTAGENE CILOLEUCEL [Suspect]
     Active Substance: AXICABTAGENE CILOLEUCEL
     Indication: DIFFUSE LARGE B-CELL LYMPHOMA
     Dosage: UNK
     Route: 042
     Dates: start: 20200810, end: 20200810
  6. OMEPRAZOLE. [Concomitant]
     Active Substance: OMEPRAZOLE
     Dosage: 40,MG,DAILY
     Route: 048
     Dates: start: 20140319, end: 20200917
  7. ACYCLOVIR [ACICLOVIR] [Concomitant]
     Active Substance: ACYCLOVIR
     Dosage: 400,MG,TWICE DAILY
     Route: 048
     Dates: start: 20200617, end: 20200805
  8. ALLOPURINOL. [Concomitant]
     Active Substance: ALLOPURINOL
     Dosage: 300,MG,DAILY
     Route: 048
     Dates: start: 20200617, end: 20200818
  9. POTASSIUM CHLORIDE. [Concomitant]
     Active Substance: POTASSIUM CHLORIDE
     Dosage: 40,OTHER,DAILY
     Route: 041
     Dates: start: 20200907, end: 20200907
  10. MIDODRINE [Concomitant]
     Active Substance: MIDODRINE
     Dosage: 7.5,MG,TWICE DAILY
     Route: 045
     Dates: start: 20200825, end: 20200825
  11. MIDODRINE [Concomitant]
     Active Substance: MIDODRINE
     Dosage: 7.5,MG,THREE TIMES DAILY
     Route: 045
     Dates: start: 20200826
  12. MIDAZOLAM. [Concomitant]
     Active Substance: MIDAZOLAM
     Dosage: 1,MG,DAILY
     Route: 041
     Dates: start: 20200906, end: 20200906
  13. CEFEPIME [Concomitant]
     Active Substance: CEFEPIME HYDROCHLORIDE
     Dosage: 1000,MG,TWICE DAILY
     Route: 048
     Dates: start: 20200817, end: 20200817
  14. CEFEPIME [Concomitant]
     Active Substance: CEFEPIME HYDROCHLORIDE
     Dosage: 1,G,TWICE DAILY
     Route: 041
     Dates: start: 20200824, end: 20200824
  15. DOCUSATE;SENNA [Concomitant]
     Active Substance: DOCUSATE\SENNOSIDES
     Dosage: 50,MG,DAILY
     Route: 048
     Dates: start: 20200812, end: 20200813
  16. FLUDARABINE [Suspect]
     Active Substance: FLUDARABINE PHOSPHATE
     Indication: BONE MARROW CONDITIONING REGIMEN
     Dosage: 30
     Route: 042
     Dates: start: 20200806, end: 20200808
  17. TRAMADOL. [Concomitant]
     Active Substance: TRAMADOL
     Dosage: 50,MG,TWICE DAILY
     Route: 048
     Dates: start: 20200820, end: 20200822
  18. SODIUM CHLORIDE 0.9% [Concomitant]
     Active Substance: SODIUM CHLORIDE
     Dosage: 1000,ML,OTHER
     Route: 041
     Dates: start: 20200712, end: 20200712
  19. SODIUM CHLORIDE 0.9% [Concomitant]
     Active Substance: SODIUM CHLORIDE
     Dosage: 500,ML,TWICE DAILY
     Route: 041
     Dates: start: 20200814, end: 20200814
  20. SODIUM CHLORIDE 0.9% [Concomitant]
     Active Substance: SODIUM CHLORIDE
     Dosage: 500,ML,DAILY
     Route: 041
     Dates: start: 20200815, end: 20200815
  21. POTASSIUM CHLORIDE. [Concomitant]
     Active Substance: POTASSIUM CHLORIDE
     Dosage: 20,OTHER,DAILY
     Route: 041
     Dates: start: 20200820, end: 20200820
  22. SODIUM CHLORIDE. [Concomitant]
     Active Substance: SODIUM CHLORIDE
     Dosage: 1000,MG,DAILY
     Route: 048
     Dates: start: 20200725, end: 20200917
  23. LORAZEPAM. [Concomitant]
     Active Substance: LORAZEPAM
     Dosage: 0.5,MG,THREE TIMES DAILY
     Route: 048
     Dates: start: 20200730
  24. LORAZEPAM. [Concomitant]
     Active Substance: LORAZEPAM
     Dosage: 0.5,MG,DAILY
     Route: 048
     Dates: start: 20020811, end: 20200812
  25. LORAZEPAM. [Concomitant]
     Active Substance: LORAZEPAM
     Dosage: 0.5,MG,DAILY
     Route: 048
     Dates: start: 20200814, end: 20200815
  26. LORAZEPAM. [Concomitant]
     Active Substance: LORAZEPAM
     Dosage: 0.5,MG,DAILY
     Route: 041
     Dates: start: 20200825, end: 20200825
  27. MIDAZOLAM. [Concomitant]
     Active Substance: MIDAZOLAM
     Dosage: 1,MG,TWICE DAILY
     Route: 041
     Dates: start: 20200825, end: 20200825
  28. ACYCLOVIR [ACICLOVIR] [Concomitant]
     Active Substance: ACYCLOVIR
     Dosage: 800,MG,TWICE DAILY
     Route: 048
     Dates: start: 20200806, end: 20200906
  29. LORAZEPAM. [Concomitant]
     Active Substance: LORAZEPAM
     Dosage: 0.5,MG,DAILY
     Route: 041
     Dates: start: 20200827, end: 20200827
  30. CEFAZOLIN [Concomitant]
     Active Substance: CEFAZOLIN
     Dosage: 2,G,OTHER
     Route: 041
     Dates: start: 20200804, end: 20200804
  31. FENTANYL. [Concomitant]
     Active Substance: FENTANYL
     Dosage: 25,OTHER,OTHER
     Route: 041
     Dates: start: 20200906, end: 20200906
  32. CYCLOPHOSPHAMIDE. [Suspect]
     Active Substance: CYCLOPHOSPHAMIDE
     Indication: BONE MARROW CONDITIONING REGIMEN
     Dosage: 500
     Route: 042
     Dates: start: 20200805, end: 20200808
  33. POTASSIUM CHLORIDE. [Concomitant]
     Active Substance: POTASSIUM CHLORIDE
     Dosage: 20,OTHER,TWICE DAILY
     Route: 048
     Dates: start: 20200817, end: 20200819
  34. SODIUM CHLORIDE. [Concomitant]
     Active Substance: SODIUM CHLORIDE
     Dosage: 1000,MG,DAILY
     Route: 048
     Dates: start: 20200725
  35. LORAZEPAM. [Concomitant]
     Active Substance: LORAZEPAM
     Dosage: 0.5 MG BID, NASAL ROUTE
     Dates: start: 20200828, end: 20200829
  36. LORAZEPAM. [Concomitant]
     Active Substance: LORAZEPAM
     Dosage: 0.5,MG,THREE TIMES DAILY
     Route: 048
     Dates: start: 20200730, end: 20200917
  37. FENTANYL. [Concomitant]
     Active Substance: FENTANYL
     Dosage: 25,OTHER,THREE TIMES DAILY
     Route: 041
     Dates: start: 20200804, end: 20200804
  38. MIDAZOLAM. [Concomitant]
     Active Substance: MIDAZOLAM
     Dosage: 0.5,MG,TWICE DAILY
     Route: 041
     Dates: start: 20200804, end: 20200804
  39. CEFEPIME [Concomitant]
     Active Substance: CEFEPIME HYDROCHLORIDE
     Dosage: 1000,MG,TWICE DAILY
     Route: 048
     Dates: start: 20200825, end: 20200825
  40. CEFEPIME [Concomitant]
     Active Substance: CEFEPIME HYDROCHLORIDE
     Dosage: 1000,MG,DAILY
     Route: 048
     Dates: start: 20200826, end: 20200826
  41. GUAIFENESIN. [Concomitant]
     Active Substance: GUAIFENESIN
     Dosage: 100,MG,DAILY
     Route: 048
     Dates: start: 20200816, end: 20200816
  42. TRAMADOL. [Concomitant]
     Active Substance: TRAMADOL
     Dosage: 50,MG,OTHER
     Route: 048
     Dates: start: 20200617, end: 20200905
  43. SODIUM CHLORIDE 0.9% [Concomitant]
     Active Substance: SODIUM CHLORIDE
     Dosage: 1000,ML,DAILY
     Route: 041
     Dates: start: 20200819, end: 20200819
  44. POTASSIUM CHLORIDE. [Concomitant]
     Active Substance: POTASSIUM CHLORIDE
     Dosage: 20,OTHER,TWICE DAILY
     Route: 048
     Dates: start: 20200721, end: 20200917
  45. POTASSIUM CHLORIDE. [Concomitant]
     Active Substance: POTASSIUM CHLORIDE
     Dosage: 20,OTHER,TWICE DAILY
     Route: 041
     Dates: start: 20200908, end: 20200908
  46. LORAZEPAM. [Concomitant]
     Active Substance: LORAZEPAM
     Dosage: 0.5,MG,TWICE DAILY
     Route: 048
     Dates: start: 20200816, end: 20200817
  47. LORAZEPAM. [Concomitant]
     Active Substance: LORAZEPAM
     Dosage: 0.5,MG,DAILY
     Route: 048
     Dates: start: 20200820, end: 20200821
  48. LORAZEPAM. [Concomitant]
     Active Substance: LORAZEPAM
     Dosage: 0.25,MG,TWICE DAILY
     Route: 041
     Dates: start: 20200822, end: 20200822
  49. LORAZEPAM. [Concomitant]
     Active Substance: LORAZEPAM
     Dosage: 0.25,MG,TWICE DAILY
     Route: 041
     Dates: start: 20200901, end: 20200901
  50. FENTANYL. [Concomitant]
     Active Substance: FENTANYL
     Dosage: 50,OTHER,AS NECESSARY
     Route: 041
     Dates: start: 20200907
  51. CEFEPIME [Concomitant]
     Active Substance: CEFEPIME HYDROCHLORIDE
     Dosage: 1000,MG,THREE TIMES DAILY
     Route: 041
     Dates: start: 20200811, end: 20200816
  52. CEFEPIME [Concomitant]
     Active Substance: CEFEPIME HYDROCHLORIDE
     Dosage: 1000,MG,TWICE DAILY
     Route: 041
     Dates: start: 20200902, end: 20200902
  53. SODIUM CHLORIDE 0.9% [Concomitant]
     Active Substance: SODIUM CHLORIDE
     Dosage: 1000,ML,DAILY
     Route: 041
     Dates: start: 20200823, end: 20200823
  54. SODIUM CHLORIDE 0.9% [Concomitant]
     Active Substance: SODIUM CHLORIDE
     Dosage: 2,G,TWICE DAILY
     Route: 041
     Dates: start: 20200817, end: 20200820
  55. LORAZEPAM. [Concomitant]
     Active Substance: LORAZEPAM
     Dosage: 0.25 MG BID, NASAL ROUTE
     Dates: start: 20200831, end: 20200831
  56. GUAIFENESIN. [Concomitant]
     Active Substance: GUAIFENESIN
     Dosage: 100,MG,DAILY
     Route: 048
     Dates: start: 20200816
  57. POLYETHYLENE GLYCOL 3350. [Concomitant]
     Active Substance: POLYETHYLENE GLYCOL 3350
     Dosage: 17,G,DAILY
     Route: 048
     Dates: start: 20140319, end: 20200917
  58. POTASSIUM CHLORIDE. [Concomitant]
     Active Substance: POTASSIUM CHLORIDE
     Dosage: 40,OTHER,TWICE DAILY
     Route: 042
     Dates: start: 20200829, end: 20200829
  59. POTASSIUM CHLORIDE. [Concomitant]
     Active Substance: POTASSIUM CHLORIDE
     Dosage: 40,OTHER,DAILY
     Route: 041
     Dates: start: 20200901, end: 20200902
  60. POTASSIUM CHLORIDE. [Concomitant]
     Active Substance: POTASSIUM CHLORIDE
     Dosage: 20,OTHER,THREE TIMES DAILY
     Route: 041
     Dates: start: 20200829, end: 20200903
  61. LORAZEPAM. [Concomitant]
     Active Substance: LORAZEPAM
     Dosage: 0.25,MG,DAILY
     Route: 041
     Dates: start: 20200823, end: 20200823
  62. CEFEPIME [Concomitant]
     Active Substance: CEFEPIME HYDROCHLORIDE
     Dosage: 1000,MG,THREE TIMES DAILY
     Route: 041
     Dates: start: 20200811

REACTIONS (5)
  - Lethargy [Recovered/Resolved]
  - Muscular weakness [Recovering/Resolving]
  - Diffuse large B-cell lymphoma [Fatal]
  - Hypoxia [Recovered/Resolved]
  - Somnolence [Recovered/Resolved]

NARRATIVE: CASE EVENT DATE: 20200805
